FAERS Safety Report 7287571-5 (Version None)
Quarter: 2011Q1

REPORT INFORMATION
  Report Type: 
  Country: None (occurrence: None)
  Receive Date: 20110211
  Receipt Date: 20110131
  Transmission Date: 20110831
  Serious: Yes (Other)
  Sender: FDA-Public Use
  Company Number: NO-JNJFOC-20110105365

PATIENT
  Age: 82 Year
  Sex: Male
  Weight: 72 kg

DRUGS (6)
  1. WARFARIN SODIUM [Concomitant]
  2. PRAVACHOL [Concomitant]
  3. REMICADE [Suspect]
     Indication: CROHN'S DISEASE
     Dosage: 300-350 MG
     Route: 042
  4. METOPROLOL [Concomitant]
  5. IMUREL [Suspect]
     Indication: CROHN'S DISEASE
  6. RAMIPRIL [Concomitant]

REACTIONS (2)
  - ATRIAL FIBRILLATION [None]
  - INTERSTITIAL LUNG DISEASE [None]
